FAERS Safety Report 6553501-4 (Version None)
Quarter: 2010Q1

REPORT INFORMATION
  Report Type: 
  Country: None (occurrence: None)
  Receive Date: 20100122
  Receipt Date: 20100111
  Transmission Date: 20100710
  Serious: Yes (Death)
  Sender: FDA-Public Use
  Company Number: 004768

PATIENT
  Age: 31 Year
  Sex: Male

DRUGS (6)
  1. ALPRAZOLAM [Suspect]
  2. OXYCODONE HCL [Suspect]
  3. MORPHINE [Suspect]
  4. ACETAMINOPHEN W / DIPHENHYDRAMINE HYDROCHLORIDE [Suspect]
  5. DIAZEPAM [Suspect]
  6. COCAINE [Concomitant]

REACTIONS (2)
  - DRUG ABUSE [None]
  - POISONING [None]
